FAERS Safety Report 10411124 (Version 2)
Quarter: 2014Q3

REPORT INFORMATION
  Report Type: Spontaneous
  Country: US (occurrence: US)
  Receive Date: 20140826
  Receipt Date: 20140826
  Transmission Date: 20150326
  Serious: Yes (Life-Threatening, Hospitalization, Other)
  Sender: FDA-Public Use
  Company Number: US-009507513-2011SP048871

PATIENT
  Sex: Female

DRUGS (1)
  1. NUVARING [Suspect]
     Active Substance: ETHINYL ESTRADIOL\ETONOGESTREL
     Indication: CONTRACEPTION
     Dosage: 1 DF, QM
     Route: 067
     Dates: end: 20111014

REACTIONS (9)
  - Pulmonary embolism [Unknown]
  - Haemorrhage [Unknown]
  - Pyrexia [Unknown]
  - Rash [Unknown]
  - Hyperlipidaemia [Unknown]
  - Syncope [Unknown]
  - Phlebitis [Unknown]
  - Connective tissue disorder [Unknown]
  - Pulmonary infarction [Unknown]

NARRATIVE: CASE EVENT DATE: 201109
